FAERS Safety Report 9912821 (Version 2)
Quarter: 2014Q2

REPORT INFORMATION
  Report Type: Spontaneous
  Country: US (occurrence: US)
  Receive Date: 20140220
  Receipt Date: 20140414
  Transmission Date: 20141212
  Serious: No
  Sender: FDA-Public Use
  Company Number: US-PFIZER INC-2014044864

PATIENT
  Age: 62 Year
  Sex: Male
  Weight: 97.5 kg

DRUGS (3)
  1. LYRICA [Suspect]
     Indication: BACK PAIN
     Dosage: 150 MG IN THE MORNING AND 225 MG AT NIGHT, 2X/DAY
     Dates: start: 2007
  2. LYRICA [Suspect]
     Indication: HYPOAESTHESIA
     Dosage: UNK
  3. LYRICA [Suspect]
     Indication: SPINAL CORD INJURY

REACTIONS (3)
  - Expired product administered [Unknown]
  - Hypertension [Unknown]
  - Weight increased [Unknown]
